FAERS Safety Report 15134005 (Version 1)
Quarter: 2018Q3

REPORT INFORMATION
  Report Type: Spontaneous
  Country: US (occurrence: US)
  Receive Date: 20180712
  Receipt Date: 20180712
  Transmission Date: 20181010
  Serious: Yes (Other)
  Sender: FDA-Public Use
  Company Number: US-GLAXOSMITHKLINE-US2018120750

PATIENT
  Sex: Female

DRUGS (2)
  1. SENSODYNE REPAIR AND PROTECT [Suspect]
     Active Substance: STANNOUS FLUORIDE
     Indication: PRODUCT USED FOR UNKNOWN INDICATION
     Dosage: UNK
     Dates: start: 20180324
  2. SENSODYNE REPAIR AND PROTECT [Suspect]
     Active Substance: STANNOUS FLUORIDE
     Indication: PRODUCT USED FOR UNKNOWN INDICATION
     Dosage: UNK
     Dates: start: 201805

REACTIONS (8)
  - Gingival swelling [Recovered/Resolved]
  - Lip swelling [Recovered/Resolved]
  - Oral mucosal blistering [Recovered/Resolved]
  - Mouth haemorrhage [Recovered/Resolved]
  - Hypoaesthesia oral [Recovered/Resolved]
  - Stomatitis [Recovered/Resolved]
  - Hypersensitivity [Recovered/Resolved]
  - Oral pain [Recovered/Resolved]
